FAERS Safety Report 8033479-7 (Version None)
Quarter: 2012Q1

REPORT INFORMATION
  Report Type: 
  Country: None (occurrence: None)
  Receive Date: 20120110
  Receipt Date: 20120105
  Transmission Date: 20120608
  Serious: Yes (Death, Hospitalization, Congenital Anomaly, Other)
  Sender: FDA-Public Use
  Company Number: US-PFIZER INC-2011160756

PATIENT
  Sex: Female
  Weight: 2 kg

DRUGS (6)
  1. ZOLOFT [Suspect]
     Indication: DEPRESSION
     Dosage: 50 MG, DAILY AS NEEDED
     Route: 064
     Dates: start: 20100330
  2. ZOLOFT [Suspect]
     Indication: ANXIETY
  3. PROMETRIUM [Concomitant]
     Dosage: UNK
     Route: 064
  4. ZOLOFT [Suspect]
     Indication: MOOD ALTERED
  5. MULTI-VITAMINS [Concomitant]
     Dosage: UNK
     Route: 064
  6. FOLIC ACID [Concomitant]
     Dosage: ONE ORALLY DAILY
     Route: 064

REACTIONS (41)
  - LEFT VENTRICULAR HYPERTROPHY [None]
  - TALIPES [None]
  - EYELID PTOSIS CONGENITAL [None]
  - CONGESTIVE CARDIOMYOPATHY [None]
  - CYTOGENETIC ABNORMALITY [None]
  - CONGENITAL TONGUE ANOMALY [None]
  - DYSMORPHISM [None]
  - HEARING IMPAIRED [None]
  - MATERNAL EXPOSURE TIMING UNSPECIFIED [None]
  - BLOOD PRESSURE FLUCTUATION [None]
  - HYPERBILIRUBINAEMIA [None]
  - FAILURE TO THRIVE [None]
  - FEEDING DISORDER NEONATAL [None]
  - ATRIAL SEPTAL DEFECT [None]
  - GROSS MOTOR DELAY [None]
  - FINE MOTOR DELAY [None]
  - CARDIO-RESPIRATORY ARREST [None]
  - RIGHT ATRIAL DILATATION [None]
  - CARDIOMEGALY [None]
  - MITRAL VALVE INCOMPETENCE [None]
  - MUSCLE HYPERTROPHY [None]
  - CRANIOSYNOSTOSIS [None]
  - HAND DEFORMITY [None]
  - SCAPHOCEPHALY [None]
  - FOETAL GROWTH RESTRICTION [None]
  - DEFORMITY THORAX [None]
  - CARDIAC FAILURE CONGESTIVE [None]
  - LEFT ATRIAL DILATATION [None]
  - DILATATION VENTRICULAR [None]
  - SEPSIS [None]
  - LEFT VENTRICULAR FAILURE [None]
  - HYPOTONIA NEONATAL [None]
  - RESPIRATORY FAILURE [None]
  - ATELECTASIS [None]
  - TACHYCARDIA [None]
  - BRADYCARDIA [None]
  - GASTROOESOPHAGEAL REFLUX DISEASE [None]
  - RIGHT VENTRICULAR DYSFUNCTION [None]
  - PULMONARY VALVE INCOMPETENCE [None]
  - ANAEMIA [None]
  - CYANOSIS [None]
